FAERS Safety Report 8412228-4 (Version None)
Quarter: 2012Q2

REPORT INFORMATION
  Report Type: 
  Country: None (occurrence: None)
  Receive Date: 20120605
  Receipt Date: 20120521
  Transmission Date: 20120825
  Serious: Yes (Other)
  Sender: FDA-Public Use
  Company Number: JP-PFIZER INC-2012118685

PATIENT
  Age: 86 Year
  Sex: Male

DRUGS (8)
  1. THEO-DUR [Concomitant]
     Dosage: UNK
     Route: 048
  2. CELEBREX [Suspect]
     Indication: PAIN IN EXTREMITY
     Dosage: 200 MG, DAILY
     Route: 048
  3. ADALAT [Concomitant]
     Dosage: UNK
  4. MOTILIUM [Concomitant]
     Dosage: UNK
     Route: 048
  5. SELBEX [Concomitant]
     Dosage: UNK
  6. FAMOTIDINE [Concomitant]
  7. GLORIAMIN [Concomitant]
     Dosage: UNK
  8. EXFORGE [Concomitant]
     Dosage: UNK

REACTIONS (1)
  - RETINAL HAEMORRHAGE [None]
